FAERS Safety Report 25090977 (Version 1)
Quarter: 2025Q1

REPORT INFORMATION
  Report Type: Spontaneous
  Country: FR (occurrence: FR)
  Receive Date: 20250318
  Receipt Date: 20250318
  Transmission Date: 20250408
  Serious: Yes (Hospitalization)
  Sender: MERCK SHARP & DOHME LLC
  Company Number: None

PATIENT
  Age: 61 Year
  Sex: Female
  Weight: 61 kg

DRUGS (2)
  1. KEYTRUDA [Suspect]
     Active Substance: PEMBROLIZUMAB
     Indication: Squamous cell carcinoma of the cervix
     Route: 042
     Dates: start: 20240125, end: 20241223
  2. AVASTIN [Suspect]
     Active Substance: BEVACIZUMAB
     Indication: Squamous cell carcinoma of the cervix
     Route: 042
     Dates: start: 20240215, end: 20241223

REACTIONS (1)
  - Female genital tract fistula [Not Recovered/Not Resolved]

NARRATIVE: CASE EVENT DATE: 20250210
